FAERS Safety Report 7795495-X (Version None)
Quarter: 2011Q4

REPORT INFORMATION
  Report Type: 
  Country: None (occurrence: None)
  Receive Date: 20111004
  Receipt Date: 20110928
  Transmission Date: 20120403
  Serious: Yes (Disabling, Other)
  Sender: FDA-Public Use
  Company Number: US-MERCK-1008USA00770

PATIENT
  Age: 52 Year
  Sex: Female
  Weight: 75 kg

DRUGS (6)
  1. CALCIUM (UNSPECIFIED) [Concomitant]
     Route: 048
     Dates: start: 19970101
  2. FOSAMAX [Suspect]
     Route: 048
     Dates: start: 20011031, end: 20050920
  3. FOSAMAX [Suspect]
     Indication: OSTEOPOROSIS
     Route: 048
     Dates: start: 19980221, end: 20011030
  4. FOSAMAX [Suspect]
     Indication: OSTEOPENIA
     Route: 048
     Dates: start: 19980221, end: 20011030
  5. VITAMINS (UNSPECIFIED) [Concomitant]
     Dosage: ^ONGOING FOR DECADES^
     Route: 048
  6. FOSAMAX [Suspect]
     Route: 048
     Dates: start: 20011031, end: 20050920

REACTIONS (22)
  - TOOTH DISORDER [None]
  - GLAUCOMA [None]
  - FEMUR FRACTURE [None]
  - SENSITIVITY OF TEETH [None]
  - SPINAL OSTEOARTHRITIS [None]
  - VITAMIN D DEFICIENCY [None]
  - INCORRECT DOSE ADMINISTERED [None]
  - CAROTIDYNIA [None]
  - MIGRAINE [None]
  - DEAFNESS [None]
  - NAUSEA [None]
  - STRESS FRACTURE [None]
  - HYPOACUSIS [None]
  - HEPATIC STEATOSIS [None]
  - MUSCULOSKELETAL PAIN [None]
  - TOOTHACHE [None]
  - SPINAL DISORDER [None]
  - BODY HEIGHT DECREASED [None]
  - IMPAIRED HEALING [None]
  - VERTIGO [None]
  - NASAL CONGESTION [None]
  - DIVERTICULUM [None]
